FAERS Safety Report 21119795 (Version 2)
Quarter: 2023Q2

REPORT INFORMATION
  Report Type: Report from Study
  Country: US (occurrence: US)
  Receive Date: 20220722
  Receipt Date: 20230504
  Transmission Date: 20230722
  Serious: Yes (Other)
  Sender: FDA-Public Use
  Company Number: US-TAKEDA-2022TUS049249

PATIENT
  Age: 81 Year
  Sex: Male

DRUGS (12)
  1. VELAGLUCERASE ALFA [Suspect]
     Active Substance: VELAGLUCERASE ALFA
     Indication: Gaucher^s disease
     Dosage: 29.4 INTERNATIONAL UNIT/KILOGRAM, Q2WEEKS
     Route: 065
     Dates: start: 201208, end: 201212
  2. VELAGLUCERASE ALFA [Suspect]
     Active Substance: VELAGLUCERASE ALFA
     Dosage: 44.1 INTERNATIONAL UNIT/KILOGRAM, Q2WEEKS
     Route: 065
     Dates: start: 201212, end: 201302
  3. GLUCOPHAGE [Concomitant]
     Active Substance: METFORMIN HYDROCHLORIDE
     Indication: Weight abnormal
     Dosage: UNK UNK, BID
     Route: 048
     Dates: start: 200611
  4. SYNTHROID [Concomitant]
     Active Substance: LEVOTHYROXINE SODIUM
     Indication: Hypothyroidism
     Dosage: UNK UNK, QD
     Route: 048
     Dates: start: 200611
  5. FOSAMAX [Concomitant]
     Active Substance: ALENDRONATE SODIUM
     Indication: Osteoporosis
     Dosage: UNK UNK, 1/WEEK
     Route: 048
     Dates: start: 200611
  6. CALCIUM\VITAMIN D [Concomitant]
     Active Substance: CALCIUM\VITAMIN D
     Indication: Bone disorder
     Dosage: UNK UNK, QD
     Route: 048
     Dates: start: 20110416
  7. COREG [Concomitant]
     Active Substance: CARVEDILOL
     Indication: Hypertension
     Dosage: UNK UNK, BID
     Route: 048
     Dates: start: 2013, end: 2014
  8. ALPHAGAN P [Concomitant]
     Active Substance: BRIMONIDINE TARTRATE
     Indication: Eye disorder
     Dosage: UNK UNK, QD
     Route: 047
     Dates: start: 20130615
  9. AZOPT [Concomitant]
     Active Substance: BRINZOLAMIDE
     Indication: Eye disorder
     Dosage: UNK UNK, QD
     Route: 047
     Dates: start: 20130617
  10. COMBIVENT RESPIMAT [Concomitant]
     Active Substance: ALBUTEROL SULFATE\IPRATROPIUM BROMIDE
     Indication: Lung disorder
     Dosage: UNK UNK, QID
     Route: 050
     Dates: start: 201309
  11. HYDRODIURIL [Concomitant]
     Active Substance: HYDROCHLOROTHIAZIDE
     Indication: Polyuria
     Dosage: UNK UNK, QD
     Route: 048
     Dates: start: 2014, end: 2015
  12. LUMIGAN [Concomitant]
     Active Substance: BIMATOPROST
     Indication: Eye disorder
     Dosage: UNK UNK, QD
     Route: 047
     Dates: start: 2014, end: 2015

REACTIONS (1)
  - Hepatic neoplasm [Recovered/Resolved]

NARRATIVE: CASE EVENT DATE: 20160801
